FAERS Safety Report 7980662-2 (Version None)
Quarter: 2011Q4

REPORT INFORMATION
  Report Type: 
  Country: None (occurrence: None)
  Receive Date: 20111214
  Receipt Date: 20111205
  Transmission Date: 20120403
  Serious: Yes (Other)
  Sender: FDA-Public Use
  Company Number: JP-PFIZER INC-2011296748

PATIENT
  Age: 9 Year
  Sex: Female

DRUGS (18)
  1. METHYLPREDNISOLONE [Suspect]
     Indication: T-CELL LYMPHOMA
     Dosage: 25 MG, UNK
     Route: 037
     Dates: start: 20110826
  2. CYCLOPHOSPHAMIDE [Concomitant]
     Dosage: 455 MG/DAY
     Route: 041
  3. CYTARABINE [Suspect]
     Indication: T-CELL LYMPHOMA
     Dosage: 30 MG, UNK
     Route: 037
     Dates: start: 20110826
  4. PREDNISOLONE [Concomitant]
     Indication: T-CELL LYMPHOMA
     Dosage: 27 MG/DAY
     Route: 041
     Dates: start: 20110826
  5. PREDNISOLONE [Concomitant]
     Dosage: 60 MG/DAY
     Route: 041
  6. CYCLOPHOSPHAMIDE [Concomitant]
     Dosage: 930 MG/DAY
     Route: 041
  7. ELSPAR [Concomitant]
     Indication: T-CELL LYMPHOMA
     Dosage: 5580 IU/DAY
  8. METHOTREXATE SODIUM [Suspect]
     Dosage: 4650 MG
     Route: 042
  9. MERCAPTOPURINE [Concomitant]
     Dosage: 23 MG, UNK
     Route: 048
  10. METHYLPREDNISOLONE [Suspect]
     Dosage: 25 MG, UNK
     Route: 037
  11. CYTARABINE [Suspect]
     Dosage: 30 MG, UNK
     Route: 037
  12. METHOTREXATE SODIUM [Suspect]
     Indication: T-CELL LYMPHOMA
     Dosage: 12 MG, UNK
     Route: 037
     Dates: start: 20110826
  13. METHOTREXATE SODIUM [Suspect]
     Dosage: 12 MG, UNK
     Route: 037
  14. VINCRISTINE [Concomitant]
     Indication: T-CELL LYMPHOMA
     Dosage: 1.4 MG/DAY
     Route: 041
  15. MERCAPTOPURINE [Concomitant]
     Indication: T-CELL LYMPHOMA
     Dosage: 55 MG/DAY
     Route: 048
  16. CYTARABINE [Suspect]
     Dosage: 68 MG/DAY
     Route: 041
  17. CYCLOPHOSPHAMIDE [Concomitant]
     Indication: T-CELL LYMPHOMA
     Dosage: 930 MG/DAY
     Route: 041
  18. DAUNORUBICIN [Concomitant]
     Indication: T-CELL LYMPHOMA
     Dosage: 37 MG/DAY
     Route: 041

REACTIONS (1)
  - LEUKOENCEPHALOPATHY [None]
